FAERS Safety Report 14552889 (Version 1)
Quarter: 2018Q1

REPORT INFORMATION
  Report Type: Report from Study
  Country: JP (occurrence: JP)
  Receive Date: 20180220
  Receipt Date: 20180220
  Transmission Date: 20180509
  Serious: Yes (Death, Other)
  Sender: FDA-Public Use
  Company Number: JP-ACTELION-A-CH2017-154640

PATIENT
  Age: 63 Year
  Sex: Female

DRUGS (21)
  1. FEBURIC [Concomitant]
     Active Substance: FEBUXOSTAT
  2. BEZATOL [Concomitant]
     Active Substance: BEZAFIBRATE
  3. VANARL N [Concomitant]
  4. FERROUS CITRATE NA [Concomitant]
     Active Substance: SODIUM FERROUS CITRATE
  5. WARFARIN [Concomitant]
     Active Substance: WARFARIN
  6. QUAZEPAM. [Concomitant]
     Active Substance: QUAZEPAM
  7. OPSUMIT [Suspect]
     Active Substance: MACITENTAN
     Indication: PULMONARY ARTERIAL HYPERTENSION
     Dosage: 10 MG, OD
     Route: 048
     Dates: start: 20151113, end: 20171103
  8. REVATIO [Concomitant]
     Active Substance: SILDENAFIL CITRATE
  9. OXYGEN. [Concomitant]
     Active Substance: OXYGEN
  10. MUCOSOLVAN L [Concomitant]
     Active Substance: AMBROXOL HYDROCHLORIDE
  11. SOTACOR [Concomitant]
     Active Substance: SOTALOL HYDROCHLORIDE
  12. MAINTATE [Concomitant]
     Active Substance: BISOPROLOL FUMARATE
  13. K-SUPPLY [Concomitant]
     Active Substance: POTASSIUM CHLORIDE
  14. FOSAMAC [Concomitant]
     Active Substance: ALENDRONATE SODIUM
  15. PREDONINE [Concomitant]
     Active Substance: PREDNISOLONE
  16. REBAMIPIDE [Concomitant]
     Active Substance: REBAMIPIDE
  17. METHYCOBAL [Concomitant]
     Active Substance: METHYLCOBALAMIN
  18. GASMOTIN [Concomitant]
     Active Substance: MOSAPRIDE CITRATE
  19. FUROSEMIDE. [Concomitant]
     Active Substance: FUROSEMIDE
  20. SPIRONOLACTON [Concomitant]
     Active Substance: SPIRONOLACTONE
  21. LOPERAMIDE [Concomitant]
     Active Substance: LOPERAMIDE

REACTIONS (3)
  - Pulmonary arterial hypertension [Fatal]
  - Bronchitis [Recovered/Resolved]
  - Cardiac failure [Recovered/Resolved]

NARRATIVE: CASE EVENT DATE: 20160525
